FAERS Safety Report 5465436-9 (Version None)
Quarter: 2007Q3

REPORT INFORMATION
  Report Type: 
  Country: None (occurrence: None)
  Receive Date: 20070920
  Receipt Date: 20070920
  Transmission Date: 20080115
  Serious: No
  Sender: FDA-Public Use
  Company Number: None

PATIENT
  Age: 78 Year
  Sex: Male

DRUGS (2)
  1. LEVOFLOXACIN [Suspect]
     Indication: EPIDIDYMITIS
     Dates: start: 20070722, end: 20070724
  2. CIPROFLOXACIN [Suspect]
     Dates: start: 20070724, end: 20070724

REACTIONS (1)
  - DELIRIUM [None]
